FAERS Safety Report 10313102 (Version 1)
Quarter: 2014Q3

REPORT INFORMATION
  Report Type: Spontaneous
  Country: FR (occurrence: None)
  Receive Date: 20140716
  Receipt Date: 20140716
  Transmission Date: 20150326
  Serious: Yes (Other)
  Sender: FDA-Public Use
  Company Number: 2014FR00680

PATIENT

DRUGS (3)
  1. OXALIPLATIN. [Suspect]
     Active Substance: OXALIPLATIN
     Indication: BILIARY CANCER METASTATIC
     Dosage: 100 MG/M2 WAS GIVEN AS A 2 H INFUSION ON DAY 2, INFUSION
  2. CETUXIMAB [Suspect]
     Active Substance: CETUXIMAB
     Indication: BILIARY CANCER METASTATIC
     Dosage: 500 MG/M2 AS A 150 MIN INTRAVENOUS INFUSION ON DAY 1 OR DAY 2
     Route: 042
  3. GEMCITABINE [Suspect]
     Active Substance: GEMCITABINE\GEMCITABINE HYDROCHLORIDE
     Indication: BILIARY CANCER METASTATIC
     Dosage: 1000MG/KG,IN100MTS,100MG/M2/MT.IV ON DAY1.
     Route: 042

REACTIONS (1)
  - Tumour necrosis [None]
